FAERS Safety Report 18063213 (Version 1)
Quarter: 2020Q3

REPORT INFORMATION
  Report Type: Spontaneous
  Country: IT (occurrence: IT)
  Receive Date: 20200724
  Receipt Date: 20200724
  Transmission Date: 20201103
  Serious: Yes (Other)
  Sender: FDA-Public Use
  Company Number: IT-AUROBINDO-AUR-APL-2020-036242

PATIENT
  Age: 42 Year
  Sex: Male
  Weight: 35 kg

DRUGS (2)
  1. MEROPENEM. [Suspect]
     Active Substance: MEROPENEM
     Indication: MEDIASTINITIS
     Dosage: 1 GRAM, ONCE A DAY
     Route: 065
     Dates: start: 20200619, end: 20200714
  2. VANCOMYCIN [Suspect]
     Active Substance: VANCOMYCIN
     Indication: MEDIASTINITIS
     Dosage: 750 MICROGRAM, ONCE A DAY
     Route: 065

REACTIONS (2)
  - Leukopenia [Not Recovered/Not Resolved]
  - Neutropenia [Not Recovered/Not Resolved]

NARRATIVE: CASE EVENT DATE: 20200713
